FAERS Safety Report 4543050-7 (Version None)
Quarter: 2005Q1

REPORT INFORMATION
  Report Type: 
  Country: None (occurrence: None)
  Receive Date: 20050103
  Receipt Date: 20041206
  Transmission Date: 20050727
  Serious: Yes (Death, Hospitalization)
  Sender: FDA-Public Use
  Company Number: 200413606EU

PATIENT
  Age: 75 Year
  Sex: Male

DRUGS (9)
  1. DOCETAXEL [Suspect]
     Indication: NON-SMALL CELL LUNG CANCER
     Route: 042
     Dates: start: 20041129, end: 20041129
  2. CARBOPLATIN [Suspect]
     Indication: NON-SMALL CELL LUNG CANCER
     Route: 042
     Dates: start: 20041129, end: 20041129
  3. CODE UNBROKEN [Concomitant]
     Indication: NON-SMALL CELL LUNG CANCER
     Route: 048
     Dates: start: 20040906, end: 20041207
  4. OXYCONTIN [Concomitant]
     Indication: DRUG USE FOR UNKNOWN INDICATION
  5. PRIMPERAN INJ [Concomitant]
     Indication: DRUG USE FOR UNKNOWN INDICATION
  6. PREDNISON [Concomitant]
     Indication: DRUG USE FOR UNKNOWN INDICATION
  7. EPREX [Concomitant]
     Indication: DRUG USE FOR UNKNOWN INDICATION
  8. SERETIDE 25/250 [Concomitant]
     Indication: DRUG USE FOR UNKNOWN INDICATION
     Route: 055
  9. COMBIVENT [Concomitant]
     Indication: DRUG USE FOR UNKNOWN INDICATION
     Dosage: DOSE: 4-6; DOSE UNIT: UNITS

REACTIONS (15)
  - ASTHENIA [None]
  - CARDIAC ARREST [None]
  - CHRONIC OBSTRUCTIVE AIRWAYS DISEASE EXACERBATED [None]
  - DIARRHOEA [None]
  - DYSPHAGIA [None]
  - ESCHERICHIA INFECTION [None]
  - GENERAL PHYSICAL HEALTH DETERIORATION [None]
  - LEUKOPENIA [None]
  - NAUSEA [None]
  - NEUTROPENIC INFECTION [None]
  - PULMONARY EMBOLISM [None]
  - PYREXIA [None]
  - RESPIRATORY FAILURE [None]
  - SPUTUM CULTURE POSITIVE [None]
  - SUDDEN DEATH [None]
